FAERS Safety Report 11184807 (Version 1)
Quarter: 2015Q2

REPORT INFORMATION
  Report Type: Spontaneous
  Country: GB (occurrence: GB)
  Receive Date: 20150612
  Receipt Date: 20150612
  Transmission Date: 20150821
  Serious: Yes (Other)
  Sender: FDA-Public Use
  Company Number: GB-PFIZER INC-2015194734

PATIENT
  Age: 7 Year
  Sex: Female

DRUGS (1)
  1. ZARONTIN [Suspect]
     Active Substance: ETHOSUXIMIDE
     Dosage: 7 ML, 2X/DAY

REACTIONS (3)
  - Tooth extraction [Unknown]
  - Post procedural haemorrhage [Unknown]
  - Aggression [Unknown]

NARRATIVE: CASE EVENT DATE: 20150608
